FAERS Safety Report 6389859-9 (Version None)
Quarter: 2009Q4

REPORT INFORMATION
  Report Type: 
  Country: None (occurrence: None)
  Receive Date: 20091006
  Receipt Date: 20081204
  Transmission Date: 20100525
  Serious: No
  Sender: FDA-Public Use
  Company Number: US-BRISTOL-MYERS SQUIBB COMPANY-14401343

PATIENT
  Age: 78 Year
  Sex: Female

DRUGS (1)
  1. AVAPRO [Suspect]
     Indication: HYPERTENSION
     Dosage: STRENGTH: 150MG
     Dates: start: 19990101

REACTIONS (2)
  - BLOOD PRESSURE SYSTOLIC INCREASED [None]
  - DRUG INEFFECTIVE [None]
